FAERS Safety Report 8512007 (Version 6)
Quarter: 2013Q4

REPORT INFORMATION
  Report Type: Spontaneous
  Country: US (occurrence: US)
  Receive Date: 20120413
  Receipt Date: 20131204
  Transmission Date: 20140711
  Serious: Yes (Disabling)
  Sender: FDA-Public Use
  Company Number: US-ASTRAZENECA-2011SE32261

PATIENT
  Age: 32 Year
  Sex: Female
  Weight: 96.2 kg

DRUGS (20)
  1. NEXIUM [Suspect]
     Indication: GASTRIC DISORDER
     Route: 048
     Dates: start: 20061231
  2. NEXIUM [Suspect]
     Indication: GASTRIC DISORDER
     Dosage: EVERYDAY
     Route: 048
     Dates: start: 20070126, end: 2011
  3. PRILOSEC [Suspect]
     Route: 048
     Dates: start: 2009
  4. PREDNISONE [Concomitant]
     Dates: start: 20061231
  5. LISINOPRIL-HYDROCHLOROTHIAZIDE [Concomitant]
  6. OMEPRAZOLE [Concomitant]
  7. SIMVASTATIN [Concomitant]
  8. MYCOPHENOLATE [Concomitant]
  9. CARVEDILOL [Concomitant]
  10. TRAMAZOLINE [Concomitant]
  11. PLAQUENIL [Concomitant]
  12. COMPLETE VITAMIN [Concomitant]
  13. CALCIUM [Concomitant]
  14. ERGOCALCIFEROL [Concomitant]
  15. TYLENOL 3 [Concomitant]
  16. METRONIDAZOLE [Concomitant]
     Dates: start: 20061231
  17. HYDROXYCHLOROQUINE [Concomitant]
     Dates: start: 20061230
  18. PROMETHAZINE [Concomitant]
     Dates: start: 20070101
  19. FLUCONAZOLE [Concomitant]
     Dates: start: 20070106
  20. LISINOPRIL [Concomitant]
     Dates: start: 20100312

REACTIONS (9)
  - Systemic lupus erythematosus [Unknown]
  - Osteoporosis [Unknown]
  - Multiple fractures [Unknown]
  - Bone pain [Unknown]
  - Arthritis [Unknown]
  - Calcium deficiency [Unknown]
  - Vitamin D deficiency [Unknown]
  - Bone disorder [Unknown]
  - Osteopenia [Unknown]
